FAERS Safety Report 26069500 (Version 1)
Quarter: 2025Q4

REPORT INFORMATION
  Report Type: Spontaneous
  Country: US (occurrence: US)
  Receive Date: 20251120
  Receipt Date: 20251120
  Transmission Date: 20260117
  Serious: Yes (Hospitalization, Other)
  Sender: RANBAXY
  Company Number: US-SUN PHARMACEUTICAL INDUSTRIES INC-2025R1-537318

PATIENT
  Age: 4 Year
  Sex: Male

DRUGS (2)
  1. TACROLIMUS [Suspect]
     Active Substance: TACROLIMUS
     Indication: Liver transplant
     Dosage: UNK
     Route: 065
  2. NICARDIPINE [Interacting]
     Active Substance: NICARDIPINE
     Indication: Hypertension
     Dosage: UNK
     Route: 042

REACTIONS (7)
  - Toxicity to various agents [Recovering/Resolving]
  - Drug interaction [Unknown]
  - Acute kidney injury [Recovering/Resolving]
  - Anuria [Recovering/Resolving]
  - Hypervolaemia [Recovering/Resolving]
  - Drug level increased [Recovering/Resolving]
  - Respiratory failure [Recovering/Resolving]
